FAERS Safety Report 8624823-8 (Version None)
Quarter: 2012Q3

REPORT INFORMATION
  Report Type: 
  Country: None (occurrence: None)
  Receive Date: 20120827
  Receipt Date: 20120816
  Transmission Date: 20120928
  Serious: Yes (Other)
  Sender: FDA-Public Use
  Company Number: JP-VERTEX PHARMACEUTICAL INC.-AE-2012-010171

PATIENT
  Age: 53 Year
  Sex: Male

DRUGS (4)
  1. URSO 250 [Concomitant]
     Dosage: 600 MG, QD
     Route: 048
  2. PEGINTERFERON ALFA-2B [Concomitant]
     Indication: HEPATITIS C
     Dosage: 1.5 UNK, UNK
     Route: 058
     Dates: start: 20120509
  3. VX-950 [Suspect]
     Indication: HEPATITIS C
     Dosage: 2250 MG, QD
     Route: 048
     Dates: start: 20120509, end: 20120731
  4. RIBAVIRIN [Concomitant]
     Indication: HEPATITIS C
     Dosage: 800 MG, QD
     Route: 048
     Dates: start: 20120509

REACTIONS (4)
  - RENAL IMPAIRMENT [None]
  - HYPERURICAEMIA [None]
  - RASH [None]
  - ANAEMIA [None]
